FAERS Safety Report 6017720-8 (Version None)
Quarter: 2008Q4

REPORT INFORMATION
  Report Type: 
  Country: None (occurrence: None)
  Receive Date: 20081223
  Receipt Date: 20081218
  Transmission Date: 20090506
  Serious: Yes (Life-Threatening)
  Sender: FDA-Public Use
  Company Number: JP-ASTRAZENECA-2008AP09416

PATIENT
  Age: 76 Year
  Sex: Male

DRUGS (2)
  1. NAROPIN [Suspect]
     Indication: LOCAL ANAESTHESIA
     Route: 056
     Dates: start: 20080411, end: 20080411
  2. CARBOCAIN [Suspect]
     Indication: LOCAL ANAESTHESIA
     Route: 056
     Dates: start: 20080411, end: 20080411

REACTIONS (1)
  - CONVULSION [None]
